FAERS Safety Report 8632442 (Version 2)
Quarter: 2012Q4

REPORT INFORMATION
  Report Type: 
  Country: US (occurrence: US)
  Receive Date: 20120625
  Receipt Date: 20121121
  Transmission Date: 20130627
  Serious: Yes (Hospitalization)
  Sender: FDA-Public Use
  Company Number: US-BAYER-2012-060851

PATIENT
  Age: 27 Year
  Sex: Female
  Weight: 124.72 kg

DRUGS (13)
  1. YAZ [Suspect]
     Indication: CONTRACEPTION
     Dosage: UNK
     Dates: start: 20090703, end: 2010
  2. IBUPROFEN [Concomitant]
     Indication: HEADACHE
     Dosage: 200 mg, PRN
  3. NAPROXEN [Concomitant]
  4. ABILIFY [Concomitant]
     Indication: DEPRESSION
     Dosage: 10 mg, daily
  5. X-LAX [Concomitant]
     Indication: CONSTIPATION
     Dosage: UNK UNK, PRN
  6. ANTACIDS [Concomitant]
     Indication: HEARTBURN
     Dosage: UNK UNK, PRN
  7. HALOPERIDOL [Concomitant]
     Dosage: 5 mg, HS
     Dates: start: 200907
  8. FLUOXETINE [Concomitant]
     Dosage: 20 mg, QD
     Dates: start: 200907
  9. BENZTROPINE MESYLATE [Concomitant]
     Dosage: 11 mg, HS
     Dates: start: 200907
  10. Z-PAK [Concomitant]
  11. CHANTIX [Concomitant]
  12. MOBIC [Concomitant]
  13. FLEXERIL [Concomitant]

REACTIONS (8)
  - Cholecystitis [None]
  - Injury [None]
  - Pain [None]
  - Anxiety [None]
  - Emotional distress [None]
  - Fear [None]
  - Pain [None]
  - Expired drug administered [None]
